FAERS Safety Report 10022260 (Version 2)
Quarter: 2014Q4

REPORT INFORMATION
  Report Type: Spontaneous
  Country: US (occurrence: US)
  Receive Date: 20140319
  Receipt Date: 20141223
  Transmission Date: 20150528
  Serious: Yes (Death, Hospitalization, Other)
  Sender: FDA-Public Use
  Company Number: US-009507513-1403USA008998

PATIENT
  Sex: Male
  Weight: 118.82 kg

DRUGS (1)
  1. JANUVIA [Suspect]
     Active Substance: SITAGLIPTIN PHOSPHATE
     Indication: TYPE 2 DIABETES MELLITUS
     Dosage: 100 MG, QD
     Route: 048
     Dates: start: 200901

REACTIONS (56)
  - Death [Fatal]
  - Malignant ascites [Unknown]
  - Anaemia [Unknown]
  - Hepatic steatosis [Unknown]
  - Pulmonary fibrosis [Unknown]
  - Haemothorax [Unknown]
  - Tachyarrhythmia [Unknown]
  - Spinal laminectomy [Unknown]
  - Sinus polyp [Unknown]
  - Pancreatic carcinoma metastatic [Unknown]
  - Metastases to lung [Unknown]
  - Diverticulitis [Unknown]
  - Nephrolithiasis [Unknown]
  - Skin operation [Unknown]
  - Calculus ureteric [Recovered/Resolved]
  - Chest pain [Unknown]
  - Deep vein thrombosis [Unknown]
  - Large intestinal obstruction [Unknown]
  - Cyst [Unknown]
  - Renal cyst [Unknown]
  - Splenomegaly [Unknown]
  - Eye muscle operation [Unknown]
  - Hypotension [Unknown]
  - Aspiration pleural cavity [Unknown]
  - Pyrexia [Unknown]
  - Biliary tract disorder [Unknown]
  - Biopsy liver [Unknown]
  - Cataract operation [Unknown]
  - International normalised ratio increased [Recovered/Resolved]
  - Spinal osteoarthritis [Unknown]
  - Drug hypersensitivity [Unknown]
  - Metastases to abdominal wall [Unknown]
  - Biopsy [Unknown]
  - Surgery [Unknown]
  - Hydrothorax [Unknown]
  - Bile duct stent insertion [Unknown]
  - Renal cyst [Unknown]
  - Enostosis [Unknown]
  - Osteoarthritis [Unknown]
  - Bile duct stenosis [Unknown]
  - Diarrhoea [Unknown]
  - Duodenal sphincterotomy [Unknown]
  - Arteriosclerosis [Unknown]
  - Gastritis [Unknown]
  - Metastases to liver [Unknown]
  - Metastases to lymph nodes [Unknown]
  - Metastases to spleen [Unknown]
  - Atrial fibrillation [Recovered/Resolved]
  - Deep vein thrombosis [Unknown]
  - Asthenia [Unknown]
  - Constipation [Unknown]
  - Gallbladder disorder [Unknown]
  - Arthropod bite [Unknown]
  - Chronic obstructive pulmonary disease [Not Recovered/Not Resolved]
  - Neuropathy peripheral [Unknown]
  - Diverticulum [Unknown]

NARRATIVE: CASE EVENT DATE: 200902
